FAERS Safety Report 13698351 (Version 2)
Quarter: 2017Q3

REPORT INFORMATION
  Report Type: Spontaneous
  Country: US (occurrence: US)
  Receive Date: 20170628
  Receipt Date: 20170817
  Transmission Date: 20171127
  Serious: No
  Sender: FDA-Public Use
  Company Number: US-CELGENEUS-USA-20170605504

PATIENT
  Age: 24 Year
  Sex: Male
  Weight: 88.53 kg

DRUGS (3)
  1. OTEZLA [Suspect]
     Active Substance: APREMILAST
     Indication: PSORIASIS
     Dosage: 60 MILLIGRAM
     Route: 048
     Dates: start: 20170507
  2. FLUOCINONIDE. [Concomitant]
     Active Substance: FLUOCINONIDE
     Indication: PRODUCT USED FOR UNKNOWN INDICATION
     Dosage: APPLICATION ON SKIN AS DIRECTED DAILY AS NEEDED TO DAMP SCALP, TAPER TO 2-3 TIMES A WEEK AS TOLERATE
     Route: 061
  3. AZITHROMYCIN ANHYDROUS. [Concomitant]
     Active Substance: AZITHROMYCIN ANHYDROUS
     Indication: PRODUCT USED FOR UNKNOWN INDICATION
     Dosage: 1 UNIT BY MOUTH AS DIRECTED1 P.O?BID DAY 1,THEN Q DAY
     Route: 048

REACTIONS (2)
  - Fatigue [Recovered/Resolved]
  - Sluggishness [Recovered/Resolved]

NARRATIVE: CASE EVENT DATE: 20170515
